FAERS Safety Report 21302614 (Version 4)
Quarter: 2023Q4

REPORT INFORMATION
  Report Type: Report from Study
  Country: FR (occurrence: FR)
  Receive Date: 20220907
  Receipt Date: 20231110
  Transmission Date: 20240110
  Serious: Yes (Hospitalization)
  Sender: FDA-Public Use
  Company Number: FR-JNJFOC-20220611654

PATIENT
  Age: 76 Year
  Sex: Male
  Weight: 92 kg

DRUGS (25)
  1. TECLISTAMAB [Suspect]
     Active Substance: TECLISTAMAB
     Indication: Plasma cell myeloma
     Dosage: 30 (10MG/ML) VIAL, END DATE ALSO REPORTED AS 26-MAY-2022
     Route: 058
     Dates: start: 20220524, end: 20220524
  2. TECLISTAMAB [Suspect]
     Active Substance: TECLISTAMAB
     Dosage: INTERRPUTED ON 30-MAY-2022
     Route: 058
     Dates: start: 20220526
  3. DARATUMUMAB [Suspect]
     Active Substance: DARATUMUMAB
     Indication: Plasma cell myeloma
     Dosage: ALSO REPORTED AS 15 ML, MOST RECENT DOSE 23-MAY-2022
     Route: 058
     Dates: start: 20220523, end: 20220523
  4. CALCIUM\CHOLECALCIFEROL [Concomitant]
     Active Substance: CALCIUM\CHOLECALCIFEROL
     Indication: Prophylaxis
     Route: 048
  5. RILMENIDINE [Concomitant]
     Active Substance: RILMENIDINE
     Indication: Hypertension
     Route: 048
     Dates: start: 20220523
  6. RILMENIDINE [Concomitant]
     Active Substance: RILMENIDINE
     Indication: Atrioventricular block
     Route: 048
     Dates: end: 20220523
  7. ZOLMITRIPTAN [Concomitant]
     Active Substance: ZOLMITRIPTAN
     Indication: Migraine
     Route: 048
  8. TAMSULOSIN [Concomitant]
     Active Substance: TAMSULOSIN
     Indication: Benign prostatic hyperplasia
     Route: 048
  9. ACUPAN [Concomitant]
     Active Substance: NEFOPAM HYDROCHLORIDE
     Indication: Bone pain
     Route: 042
     Dates: start: 20220323, end: 20220603
  10. CALCIUM\CHOLECALCIFEROL [Concomitant]
     Active Substance: CALCIUM\CHOLECALCIFEROL
     Indication: Vitamin supplementation
     Route: 048
     Dates: start: 20220523, end: 20220811
  11. LEUCOVORIN CALCIUM [Concomitant]
     Active Substance: LEUCOVORIN CALCIUM
     Indication: Prophylaxis
     Route: 048
     Dates: start: 20220523, end: 20220822
  12. BACTRIM [Concomitant]
     Active Substance: SULFAMETHOXAZOLE\TRIMETHOPRIM
     Indication: Infection prophylaxis
     Route: 048
     Dates: start: 20220523, end: 20220822
  13. VALACYCLOVIR HYDROCHLORIDE [Concomitant]
     Active Substance: VALACYCLOVIR HYDROCHLORIDE
     Indication: Infection prophylaxis
     Route: 048
     Dates: start: 20220523, end: 20220822
  14. PRIMPERAN [Concomitant]
     Active Substance: METOCLOPRAMIDE HYDROCHLORIDE
     Indication: Prophylaxis of nausea and vomiting
     Route: 048
     Dates: start: 20220523, end: 20220822
  15. PERFALGAN [Concomitant]
     Active Substance: ACETAMINOPHEN
     Indication: Pain prophylaxis
     Route: 048
     Dates: start: 20220523, end: 20220822
  16. SODIUM BICARBONATE [Concomitant]
     Active Substance: SODIUM BICARBONATE
     Indication: Prophylaxis
     Route: 048
     Dates: start: 20220523, end: 20220822
  17. IMODIUM [Concomitant]
     Active Substance: LOPERAMIDE HYDROCHLORIDE
     Indication: Antidiarrhoeal supportive care
     Route: 048
     Dates: start: 20220523, end: 20220603
  18. SMECTA [Concomitant]
     Active Substance: MONTMORILLONITE
     Indication: Diarrhoea
     Route: 048
     Dates: start: 20220523, end: 20220603
  19. LANSOPRAZOLE [Concomitant]
     Active Substance: LANSOPRAZOLE
     Indication: Gastrointestinal disorder therapy
     Route: 048
     Dates: start: 20220523, end: 20220603
  20. XANAX [Concomitant]
     Active Substance: ALPRAZOLAM
     Indication: Prophylaxis
     Route: 048
     Dates: start: 20220523, end: 20220603
  21. PHLOROGLUCINOL\1,3,5-TRIMETHOXYBENZENE [Concomitant]
     Active Substance: PHLOROGLUCINOL\1,3,5-TRIMETHOXYBENZENE
     Indication: Pain prophylaxis
     Route: 042
     Dates: start: 20220523, end: 20220603
  22. ONDANSETRON [Concomitant]
     Active Substance: ONDANSETRON
     Indication: Antidiarrhoeal supportive care
     Route: 042
     Dates: start: 20220523, end: 20220603
  23. CALCITAS D3 [Concomitant]
     Indication: Vitamin supplementation
     Route: 048
     Dates: end: 20220523
  24. POLYETHYLENE GLYCOLS [Concomitant]
     Active Substance: POLYETHYLENE GLYCOLS
     Indication: Constipation prophylaxis
     Route: 048
     Dates: start: 20220523, end: 20220610
  25. ZOLMITRIPTAN [Concomitant]
     Active Substance: ZOLMITRIPTAN
     Indication: Migraine
     Dosage: ^2.5^
     Route: 048

REACTIONS (1)
  - Cardiac amyloidosis [Recovered/Resolved with Sequelae]

NARRATIVE: CASE EVENT DATE: 20220528
